FAERS Safety Report 8278834-5 (Version None)
Quarter: 2012Q2

REPORT INFORMATION
  Report Type: 
  Country: None (occurrence: None)
  Receive Date: 20120412
  Receipt Date: 20111115
  Transmission Date: 20120825
  Serious: No
  Sender: FDA-Public Use
  Company Number: US-ASTRAZENECA-2011SE12429

PATIENT
  Age: 43 Year
  Sex: Male
  Weight: 98.9 kg

DRUGS (5)
  1. LISINOPRIL [Concomitant]
     Indication: HYPERTENSION
  2. NEXIUM [Suspect]
     Indication: GASTROOESOPHAGEAL REFLUX DISEASE
     Route: 048
     Dates: start: 19960101
  3. CALCIUM CARBONATE [Concomitant]
     Indication: DYSPEPSIA
  4. CARDIZEM [Concomitant]
     Indication: HYPERTENSION
  5. METFORMIN HCL [Concomitant]
     Indication: DIABETES MELLITUS

REACTIONS (3)
  - ACCIDENT AT WORK [None]
  - DRUG DOSE OMISSION [None]
  - DISABILITY [None]
